FAERS Safety Report 9282671 (Version 3)
Quarter: 2013Q3

REPORT INFORMATION
  Report Type: Report from Study
  Country: CA (occurrence: CA)
  Receive Date: 20130510
  Receipt Date: 20130916
  Transmission Date: 20140515
  Serious: Yes (Death, Other)
  Sender: FDA-Public Use
  Company Number: PHHY2013CA046101

PATIENT
  Age: 82 Year
  Sex: Female

DRUGS (4)
  1. ACLASTA [Suspect]
     Indication: OSTEOPOROSIS
     Dosage: UNK
     Route: 042
     Dates: start: 20090715
  2. ACLASTA [Suspect]
     Dosage: UNK
     Route: 042
     Dates: start: 20100728
  3. ACLASTA [Suspect]
     Dosage: UNK
     Route: 042
     Dates: start: 20110725
  4. ACLASTA [Suspect]
     Dosage: UNK
     Route: 042
     Dates: start: 20120723

REACTIONS (3)
  - Death [Fatal]
  - Sedation [Unknown]
  - Dementia Alzheimer^s type [Unknown]
